FAERS Safety Report 5009985-6 (Version None)
Quarter: 2006Q2

REPORT INFORMATION
  Report Type: 
  Country: None (occurrence: None)
  Receive Date: 20060522
  Receipt Date: 20060508
  Transmission Date: 20061013
  Serious: Yes (Other)
  Sender: FDA-Public Use
  Company Number: 2006BH009592

PATIENT
  Age: 27 Year
  Sex: Female

DRUGS (1)
  1. AMPICILLIN [Suspect]
     Indication: ANTIBIOTIC PROPHYLAXIS
     Dosage: IV
     Route: 042

REACTIONS (4)
  - ANAPHYLACTIC REACTION [None]
  - BLOOD PRESSURE DECREASED [None]
  - CAESAREAN SECTION [None]
  - DRUG EXPOSURE DURING PREGNANCY [None]
